FAERS Safety Report 21534907 (Version 1)
Quarter: 2022Q4

REPORT INFORMATION
  Report Type: Spontaneous
  Country: US (occurrence: US)
  Receive Date: 20221101
  Receipt Date: 20221101
  Transmission Date: 20230113
  Serious: No
  Sender: FDA-Public Use
  Company Number: US-MIGRATION_PFIZER-2022BHV001603

PATIENT
  Age: 61 Year
  Sex: Female
  Weight: 49.032 kg

DRUGS (1)
  1. NURTEC ODT [Suspect]
     Active Substance: RIMEGEPANT SULFATE
     Indication: Migraine
     Dosage: TAB/CAP MARKING: WHITE/ROUND?WE WERE TOLD SHE NEEDS TO TAKE ONE PILL ONCE A WEEK. THE DIRECTIONS ON
     Route: 048
     Dates: start: 202203

REACTIONS (2)
  - Drug ineffective [Not Recovered/Not Resolved]
  - Therapeutic product effect incomplete [Unknown]
